FAERS Safety Report 13739849 (Version 1)
Quarter: 2017Q3

REPORT INFORMATION
  Report Type: Spontaneous
  Country: US (occurrence: US)
  Receive Date: 20170710
  Receipt Date: 20170710
  Transmission Date: 20171127
  Serious: Yes (Hospitalization, Other)
  Sender: FDA-Public Use
  Company Number: US-ELI_LILLY_AND_COMPANY-US201706013263

PATIENT
  Age: 71 Year
  Sex: Male
  Weight: 70.3 kg

DRUGS (4)
  1. HUMALOG [Suspect]
     Active Substance: INSULIN LISPRO
     Indication: PRODUCT USED FOR UNKNOWN INDICATION
     Dosage: 6 U, DAILY
     Route: 065
     Dates: start: 2002
  2. METFORMIN [Concomitant]
     Active Substance: METFORMIN HYDROCHLORIDE
     Indication: PRODUCT USED FOR UNKNOWN INDICATION
     Dosage: UNK, UNKNOWN
     Route: 065
  3. LANTUS [Concomitant]
     Active Substance: INSULIN GLARGINE
     Indication: PRODUCT USED FOR UNKNOWN INDICATION
     Dosage: UNK, UNKNOWN
     Route: 065
     Dates: start: 2002
  4. NOVOLOG [Concomitant]
     Active Substance: INSULIN ASPART
     Indication: PRODUCT USED FOR UNKNOWN INDICATION
     Dosage: UNK, UNKNOWN
     Route: 065
     Dates: start: 2002

REACTIONS (11)
  - Meningitis viral [Recovered/Resolved]
  - Blood glucose increased [Recovered/Resolved]
  - Pneumonia [Recovered/Resolved]
  - Blood glucose decreased [Unknown]
  - Loss of consciousness [Recovered/Resolved]
  - Insomnia [Unknown]
  - Nasopharyngitis [Recovered/Resolved]
  - Blood glucose increased [Unknown]
  - Body temperature increased [Unknown]
  - Coma [Recovered/Resolved]
  - Intentional product use issue [Unknown]

NARRATIVE: CASE EVENT DATE: 201605
